FAERS Safety Report 19032322 (Version 1)
Quarter: 2021Q1

REPORT INFORMATION
  Report Type: Report from Study
  Country: US (occurrence: US)
  Receive Date: 20210319
  Receipt Date: 20210319
  Transmission Date: 20210420
  Serious: Yes (Hospitalization)
  Sender: FDA-Public Use
  Company Number: US-ADAMAS PHARMA, LLC-2021ADA00478

PATIENT
  Age: 73 Year
  Sex: Male

DRUGS (26)
  1. PRAMIPEXOLE. [Concomitant]
     Active Substance: PRAMIPEXOLE
  2. CENTRUM [Concomitant]
     Active Substance: VITAMINS
  3. MAGNESIUM [Concomitant]
     Active Substance: MAGNESIUM
  4. ATORVASTATIN [Concomitant]
     Active Substance: ATORVASTATIN
  5. VITAMIN B12 [Concomitant]
     Active Substance: CYANOCOBALAMIN
  6. GOCOVRI [Suspect]
     Active Substance: AMANTADINE
     Indication: THERAPEUTIC RESPONSE SHORTENED
     Dosage: 274 MG, 1X/DAY EVERY NIGHT AT BEDTIME
     Route: 048
     Dates: start: 20191106, end: 20210228
  7. GOCOVRI [Suspect]
     Active Substance: AMANTADINE
     Indication: FREEZING PHENOMENON
     Dosage: 137 MG,1X/DAY EVERY NIGHT AT BEDTIME
     Route: 048
     Dates: start: 20210301, end: 20210302
  8. GOCOVRI [Suspect]
     Active Substance: AMANTADINE
     Indication: MUSCLE RIGIDITY
     Dosage: 274 MG, 1X/DAY EVERY NIGHT AT BEDTIME
     Route: 048
     Dates: start: 20210303
  9. CARBIDOPA/ LEVODOPA [Concomitant]
     Active Substance: CARBIDOPA\LEVODOPA
  10. AZILECT [Concomitant]
     Active Substance: RASAGILINE MESYLATE
     Dosage: UNK
  11. MIRTAZAPINE. [Concomitant]
     Active Substance: MIRTAZAPINE
  12. TAMSULOSIN [Concomitant]
     Active Substance: TAMSULOSIN
  13. GABAPENTIN. [Concomitant]
     Active Substance: GABAPENTIN
  14. LISINOPRIL. [Concomitant]
     Active Substance: LISINOPRIL
  15. VITAMIN D3 [Concomitant]
     Active Substance: CHOLECALCIFEROL
  16. TRAZODONE [Concomitant]
     Active Substance: TRAZODONE HYDROCHLORIDE
     Dosage: ^TAKES OCCASIONALLY^
  17. ROPINIROLE. [Concomitant]
     Active Substance: ROPINIROLE
  18. TURMERIC [Concomitant]
     Active Substance: HERBALS\TURMERIC
  19. CARBIDOPA/ LEVODOPA [Concomitant]
     Active Substance: CARBIDOPA\LEVODOPA
  20. ASPIRIN. [Concomitant]
     Active Substance: ASPIRIN
  21. BIOTIN [Concomitant]
     Active Substance: BIOTIN
  22. COENZYME Q10 [Concomitant]
     Active Substance: DIETARY SUPPLEMENT\UBIDECARENONE
  23. FINASTERIDE. [Concomitant]
     Active Substance: FINASTERIDE
  24. LEVOTHYROXINE. [Concomitant]
     Active Substance: LEVOTHYROXINE
  25. LORAZEPAM. [Concomitant]
     Active Substance: LORAZEPAM
  26. MELATONIN [Concomitant]
     Active Substance: MELATONIN

REACTIONS (6)
  - Hallucination [Not Recovered/Not Resolved]
  - Product availability issue [Recovered/Resolved]
  - Intestinal obstruction [Not Recovered/Not Resolved]
  - Intentional underdose [Recovered/Resolved]
  - Thoracic vertebral fracture [Unknown]
  - Fall [Recovered/Resolved]

NARRATIVE: CASE EVENT DATE: 202012
